FAERS Safety Report 8590849-6 (Version None)
Quarter: 2012Q3

REPORT INFORMATION
  Report Type: 
  Country: None (occurrence: None)
  Receive Date: 20120731
  Receipt Date: 20120718
  Transmission Date: 20120928
  Serious: Yes (Death, Hospitalization, Other)
  Sender: FDA-Public Use
  Company Number: ADR-2012-01159

PATIENT
  Age: 65 Year
  Sex: Female

DRUGS (1)
  1. BACLOFEN [Suspect]
     Dosage: 75 MCG/DAY

REACTIONS (29)
  - PNEUMONIA [None]
  - URINE OUTPUT DECREASED [None]
  - RENAL IMPAIRMENT [None]
  - CARDIOVASCULAR DISORDER [None]
  - BLOOD ALKALINE PHOSPHATASE INCREASED [None]
  - HAEMOGLOBIN DECREASED [None]
  - BLOOD CHLORIDE DECREASED [None]
  - BLOOD ALBUMIN DECREASED [None]
  - HYPOALBUMINAEMIA [None]
  - WHITE BLOOD CELL COUNT INCREASED [None]
  - ALANINE AMINOTRANSFERASE INCREASED [None]
  - C-REACTIVE PROTEIN INCREASED [None]
  - ALBUMIN GLOBULIN RATIO DECREASED [None]
  - BILIRUBIN CONJUGATED INCREASED [None]
  - DEVICE RELATED INFECTION [None]
  - GENERAL PHYSICAL HEALTH DETERIORATION [None]
  - BLOOD CREATINE PHOSPHOKINASE INCREASED [None]
  - PLEURAL EFFUSION [None]
  - BLOOD LACTATE DEHYDROGENASE INCREASED [None]
  - ASPARTATE AMINOTRANSFERASE INCREASED [None]
  - PROTEIN TOTAL DECREASED [None]
  - ABDOMINAL DISTENSION [None]
  - BLOOD BILIRUBIN INCREASED [None]
  - RESPIRATORY FAILURE [None]
  - DIARRHOEA [None]
  - BLOOD UREA INCREASED [None]
  - GAMMA-GLUTAMYLTRANSFERASE INCREASED [None]
  - RED BLOOD CELL COUNT DECREASED [None]
  - HAEMATOCRIT DECREASED [None]
